FAERS Safety Report 25519137 (Version 2)
Quarter: 2025Q3

REPORT INFORMATION
  Report Type: Spontaneous
  Country: IL (occurrence: IL)
  Receive Date: 20250704
  Receipt Date: 20250717
  Transmission Date: 20251021
  Serious: Yes (Other)
  Sender: UCB
  Company Number: IL-GSK-IL2024EME152819

PATIENT
  Age: 50 Year
  Sex: Female

DRUGS (8)
  1. KEPPRA [Suspect]
     Active Substance: LEVETIRACETAM
     Indication: Non-small cell lung cancer metastatic
  2. KEPPRA [Suspect]
     Active Substance: LEVETIRACETAM
     Dosage: 1250 MILLIGRAM, 2X/DAY (BID)
  3. ALIMTA [Suspect]
     Active Substance: PEMETREXED DISODIUM
     Indication: Non-small cell lung cancer metastatic
  4. KEYTRUDA [Suspect]
     Active Substance: PEMBROLIZUMAB
     Indication: Non-small cell lung cancer metastatic
     Dates: start: 2022
  5. TEPOTINIB [Suspect]
     Active Substance: TEPOTINIB
     Indication: Non-small cell lung cancer metastatic
  6. CARBOPLATIN [Concomitant]
     Active Substance: CARBOPLATIN
     Indication: Non-small cell lung cancer metastatic
  7. TAXOL [Concomitant]
     Active Substance: PACLITAXEL
     Indication: Non-small cell lung cancer metastatic
  8. NIVOLUMAB [Concomitant]
     Active Substance: NIVOLUMAB
     Indication: Non-small cell lung cancer metastatic

REACTIONS (36)
  - Disease progression [Unknown]
  - Brain oedema [Unknown]
  - Condition aggravated [Unknown]
  - Peripheral swelling [Recovering/Resolving]
  - Dyspnoea exertional [Unknown]
  - Neuropathy peripheral [Recovering/Resolving]
  - Hypoaesthesia [Recovered/Resolved]
  - Gait disturbance [Unknown]
  - Oedema peripheral [Recovering/Resolving]
  - Paraesthesia [Recovered/Resolved]
  - Swelling face [Recovered/Resolved]
  - Constipation [Unknown]
  - Nausea [Unknown]
  - Skin hyperpigmentation [Unknown]
  - Neoplasm [Unknown]
  - Asthenia [Recovering/Resolving]
  - Grip strength decreased [Unknown]
  - Sensory loss [Unknown]
  - Headache [Unknown]
  - Arthralgia [Unknown]
  - Tremor [Unknown]
  - Goitre [Unknown]
  - Dizziness [Recovered/Resolved]
  - Palpitations [Recovered/Resolved]
  - Insomnia [Recovering/Resolving]
  - Discomfort [Not Recovered/Not Resolved]
  - Pain [Not Recovered/Not Resolved]
  - Dyspnoea [Unknown]
  - Decreased appetite [Unknown]
  - Infusion site erythema [Recovered/Resolved]
  - Skin disorder [Recovered/Resolved]
  - Pyrexia [Unknown]
  - Hypersensitivity [Unknown]
  - Lacrimation increased [Unknown]
  - Vaginal discharge [Unknown]
  - Product use in unapproved indication [Unknown]
